FAERS Safety Report 9194665 (Version 1)
Quarter: 2013Q1

REPORT INFORMATION
  Report Type: Spontaneous
  Country: US (occurrence: US)
  Receive Date: 20130328
  Receipt Date: 20130328
  Transmission Date: 20140127
  Serious: No
  Sender: FDA-Public Use
  Company Number: US-ALLERGAN-1209381US

PATIENT
  Age: 66 Year
  Sex: Female

DRUGS (5)
  1. LATISSE 0.03% [Suspect]
     Indication: GROWTH OF EYELASHES
     Dosage: 2 GTT, QPM
     Route: 061
     Dates: start: 201204
  2. LATISSE 0.03% [Suspect]
     Dosage: 2 GTT, QOD
     Route: 061
     Dates: start: 201202, end: 201204
  3. LATISSE 0.03% [Suspect]
     Dosage: 2 GTT, QPM
     Route: 061
     Dates: start: 201110, end: 201202
  4. REFRESH TEARS [Concomitant]
     Indication: DRY EYE
     Dosage: 2 GTT, PRN
     Route: 047
     Dates: start: 2011
  5. ATENOLOL [Concomitant]
     Indication: HYPERTENSION
     Dosage: 1 N/A, QD
     Route: 048

REACTIONS (3)
  - Inappropriate schedule of drug administration [Unknown]
  - Incorrect dose administered [Unknown]
  - Trichorrhexis [Not Recovered/Not Resolved]
